FAERS Safety Report 13188364 (Version 1)
Quarter: 2017Q1

REPORT INFORMATION
  Report Type: Spontaneous
  Country: US (occurrence: US)
  Receive Date: 20170203
  Receipt Date: 20170203
  Transmission Date: 20170428
  Serious: No
  Sender: FDA-Public Use
  Company Number: None

PATIENT
  Age: 69 Year
  Sex: Male
  Weight: 79.65 kg

DRUGS (6)
  1. VYTORIN [Concomitant]
     Active Substance: EZETIMIBE\SIMVASTATIN
  2. ANDROGEL [Concomitant]
     Active Substance: TESTOSTERONE
  3. ASPIRIN. [Concomitant]
     Active Substance: ASPIRIN
  4. METFORMIN [Concomitant]
     Active Substance: METFORMIN HYDROCHLORIDE
  5. PIOGLITAZONE. [Suspect]
     Active Substance: PIOGLITAZONE
     Indication: DIABETES MELLITUS
     Dosage: ?          QUANTITY:90 TABLET(S);?
     Route: 048
     Dates: start: 20170117, end: 20170202
  6. MELOXICAM. [Concomitant]
     Active Substance: MELOXICAM

REACTIONS (9)
  - Rhinorrhoea [None]
  - Vision blurred [None]
  - Influenza [None]
  - Weight increased [None]
  - Fatigue [None]
  - Hunger [None]
  - Muscle spasms [None]
  - Lacrimation increased [None]
  - Myalgia [None]

NARRATIVE: CASE EVENT DATE: 20170202
